FAERS Safety Report 23463913 (Version 1)
Quarter: 2024Q1

REPORT INFORMATION
  Report Type: Spontaneous
  Country: FR (occurrence: FR)
  Receive Date: 20240201
  Receipt Date: 20240201
  Transmission Date: 20240409
  Serious: Yes (Hospitalization)
  Sender: FDA-Public Use
  Company Number: FR-CELLTRION INC.-2024FR002121

PATIENT

DRUGS (19)
  1. RITUXIMAB [Suspect]
     Active Substance: RITUXIMAB
     Indication: Burkitt^s lymphoma
     Dosage: 375 MG/M2
     Dates: start: 20230910, end: 20230910
  2. RITUXIMAB [Suspect]
     Active Substance: RITUXIMAB
     Dosage: 375 MG/M2
     Dates: start: 20230920, end: 20230920
  3. RITUXIMAB [Suspect]
     Active Substance: RITUXIMAB
     Dosage: 375 MG/M2
     Dates: start: 20231011, end: 20231011
  4. CYTARABINE [Suspect]
     Active Substance: CYTARABINE
     Indication: Burkitt^s lymphoma
     Dosage: 30 MG
     Dates: start: 20230910, end: 20230910
  5. CYTARABINE [Suspect]
     Active Substance: CYTARABINE
     Dosage: 30 MG
     Dates: start: 20230920, end: 20230920
  6. CYTARABINE [Suspect]
     Active Substance: CYTARABINE
     Dosage: 30 MG
     Dates: start: 20231011, end: 20231011
  7. CYTARABINE [Suspect]
     Active Substance: CYTARABINE
     Dosage: 30 MG
     Dates: start: 20230902, end: 20230902
  8. CYCLOPHOSPHAMIDE [Suspect]
     Active Substance: CYCLOPHOSPHAMIDE
     Indication: Burkitt^s lymphoma
     Dosage: 375 MG/M2
     Dates: start: 20230910, end: 20230910
  9. CYCLOPHOSPHAMIDE [Suspect]
     Active Substance: CYCLOPHOSPHAMIDE
     Dosage: 250 MG/M2
     Dates: start: 20230920, end: 20230920
  10. CYCLOPHOSPHAMIDE [Suspect]
     Active Substance: CYCLOPHOSPHAMIDE
     Dosage: 375 MG/M2
     Dates: start: 20230902, end: 20230902
  11. CYCLOPHOSPHAMIDE [Suspect]
     Active Substance: CYCLOPHOSPHAMIDE
     Dosage: 250 MG/M2
     Dates: start: 20231011, end: 20231011
  12. METHOTREXATE [Suspect]
     Active Substance: METHOTREXATE
     Indication: Burkitt^s lymphoma
     Dosage: 8000 MG/M2
     Dates: start: 20230920, end: 20230920
  13. METHOTREXATE [Suspect]
     Active Substance: METHOTREXATE
     Dosage: 8000 MG/M2
     Dates: start: 20231011, end: 20231011
  14. METHOTREXATE [Suspect]
     Active Substance: METHOTREXATE
     Dosage: 15 MG
     Dates: start: 20231011, end: 20231011
  15. METHOTREXATE [Suspect]
     Active Substance: METHOTREXATE
     Dosage: 15 MG
     Dates: start: 20230920, end: 20230920
  16. METHOTREXATE [Suspect]
     Active Substance: METHOTREXATE
     Dosage: 15 MG
     Dates: start: 20230910, end: 20230910
  17. FUROSEMIDE [Concomitant]
     Active Substance: FUROSEMIDE
  18. CALCIUM CARBONATE\CHOLECALCIFEROL [Concomitant]
     Active Substance: CALCIUM CARBONATE\CHOLECALCIFEROL
  19. PIPERACILLIN SODIUM\TAZOBACTAM SODIUM [Concomitant]
     Active Substance: PIPERACILLIN SODIUM\TAZOBACTAM SODIUM

REACTIONS (1)
  - Visual acuity reduced [Not Recovered/Not Resolved]

NARRATIVE: CASE EVENT DATE: 20230910
